FAERS Safety Report 7980733-0 (Version None)
Quarter: 2011Q4

REPORT INFORMATION
  Report Type: 
  Country: None (occurrence: None)
  Receive Date: 20111214
  Receipt Date: 20111116
  Transmission Date: 20120403
  Serious: Yes (Other)
  Sender: FDA-Public Use
  Company Number: US-ASTRAZENECA-2011SE21139

PATIENT
  Age: 68 Year
  Sex: Male

DRUGS (4)
  1. LIPITOR [Concomitant]
  2. PLAVIX [Concomitant]
  3. XADIA [Concomitant]
  4. CRESTOR [Suspect]
     Route: 048

REACTIONS (7)
  - INFECTION [None]
  - PERIPHERAL EMBOLISM [None]
  - DEMENTIA [None]
  - DRUG HYPERSENSITIVITY [None]
  - TOOTH FRACTURE [None]
  - ADVERSE EVENT [None]
  - CIRCUMSTANCE OR INFORMATION CAPABLE OF LEADING TO MEDICATION ERROR [None]
